FAERS Safety Report 18935901 (Version 1)
Quarter: 2021Q1

REPORT INFORMATION
  Report Type: Spontaneous
  Country: US (occurrence: US)
  Receive Date: 20210225
  Receipt Date: 20210225
  Transmission Date: 20210420
  Serious: No
  Sender: FDA-Public Use
  Company Number: US-BIOGEN-2021BI00975765

PATIENT
  Age: 32 Year
  Sex: Female
  Weight: 87.62 kg

DRUGS (4)
  1. TECFIDERA [Suspect]
     Active Substance: DIMETHYL FUMARATE
     Indication: MULTIPLE SCLEROSIS
     Dosage: STARTING DOSE
     Route: 048
  2. TECFIDERA [Suspect]
     Active Substance: DIMETHYL FUMARATE
     Dosage: MAINTENANCE DOSE
     Route: 048
     Dates: start: 202101, end: 202101
  3. OTEZLA [Concomitant]
     Active Substance: APREMILAST
     Route: 048
  4. BACLOFEN. [Concomitant]
     Active Substance: BACLOFEN
     Route: 048
     Dates: start: 20200409

REACTIONS (14)
  - Hypoaesthesia [Unknown]
  - Weight increased [Unknown]
  - Flushing [Unknown]
  - Asthenia [Unknown]
  - Muscle spasms [Unknown]
  - Feeling abnormal [Unknown]
  - Mood swings [Unknown]
  - Drug intolerance [Unknown]
  - Pain in extremity [Unknown]
  - Bipolar disorder [Unknown]
  - Gastrointestinal disorder [Unknown]
  - Back pain [Unknown]
  - Nausea [Unknown]
  - Rash [Unknown]

NARRATIVE: CASE EVENT DATE: 20210201
